FAERS Safety Report 10034565 (Version 1)
Quarter: 2014Q1

REPORT INFORMATION
  Report Type: Spontaneous
  Country: US (occurrence: US)
  Receive Date: 20140325
  Receipt Date: 20140325
  Transmission Date: 20141002
  Serious: Yes (Other)
  Sender: FDA-Public Use
  Company Number: US-ROCHE-1365452

PATIENT
  Age: 49 Year
  Sex: Male

DRUGS (6)
  1. BEVACIZUMAB [Suspect]
     Indication: LUNG ADENOCARCINOMA
     Route: 065
     Dates: end: 201203
  2. CARBOPLATIN [Concomitant]
     Indication: LUNG ADENOCARCINOMA
  3. GEMCITABINE [Concomitant]
     Indication: LUNG ADENOCARCINOMA
  4. CRIZOTINIB [Concomitant]
     Indication: LUNG ADENOCARCINOMA
     Route: 065
     Dates: start: 201203
  5. CRIZOTINIB [Concomitant]
     Route: 065
  6. PEMETREXED [Concomitant]
     Indication: LUNG ADENOCARCINOMA

REACTIONS (10)
  - Haemolytic anaemia [Unknown]
  - Neuropathy peripheral [Unknown]
  - Fatigue [Unknown]
  - Metastases to liver [Unknown]
  - Central nervous system lesion [Unknown]
  - Hepatic function abnormal [Unknown]
  - Chromaturia [Unknown]
  - Faeces pale [Unknown]
  - Disease progression [Unknown]
  - Liver function test abnormal [Unknown]
